FAERS Safety Report 9196385 (Version 1)
Quarter: 2013Q1

REPORT INFORMATION
  Report Type: Spontaneous
  Country: FR (occurrence: FR)
  Receive Date: 20130328
  Receipt Date: 20130328
  Transmission Date: 20140127
  Serious: Yes (Hospitalization)
  Sender: FDA-Public Use
  Company Number: FR-PFIZER INC-2013092522

PATIENT
  Age: 46 Year
  Sex: Female

DRUGS (7)
  1. REVATIO [Suspect]
     Indication: PULMONARY ARTERIAL HYPERTENSION
     Dosage: 20 MG, 3X/DAY
     Route: 048
  2. EPOPROSTENOL [Suspect]
     Indication: PULMONARY ARTERIAL HYPERTENSION
     Dosage: UNK
     Route: 042
     Dates: start: 20121126, end: 2012
  3. EPOPROSTENOL [Suspect]
     Dosage: 10 NG/KG/MINUTE
     Route: 042
     Dates: start: 20121206
  4. EPOPROSTENOL [Suspect]
     Dosage: 13 NG/KG/MIN
     Route: 042
     Dates: start: 20130123
  5. TRACLEER [Suspect]
     Indication: PULMONARY ARTERIAL HYPERTENSION
     Dosage: 125 MG, 2X/DAY
     Route: 048
  6. PRIMPERAN [Concomitant]
     Dosage: UNK
     Dates: start: 201211
  7. DOLIPRANE [Concomitant]
     Dosage: UNK
     Dates: start: 201211

REACTIONS (3)
  - Thrombocytopenia [Not Recovered/Not Resolved]
  - Condition aggravated [Not Recovered/Not Resolved]
  - Metrorrhagia [Recovered/Resolved]
